FAERS Safety Report 5377286-2 (Version None)
Quarter: 2007Q3

REPORT INFORMATION
  Report Type: 
  Country: None (occurrence: None)
  Receive Date: 20070703
  Receipt Date: 20070627
  Transmission Date: 20080115
  Serious: Yes (Other)
  Sender: FDA-Public Use
  Company Number: CAWYE927627JUN07

PATIENT
  Sex: Male

DRUGS (1)
  1. TEMSIROLIMUS [Suspect]
     Indication: METASTATIC RENAL CELL CARCINOMA
     Dosage: UNKNOWN
     Dates: end: 20070501

REACTIONS (5)
  - ABDOMINAL DISTENSION [None]
  - ANGINA PECTORIS [None]
  - CONSTIPATION [None]
  - DYSPNOEA [None]
  - HEPATIC ENZYME INCREASED [None]
